FAERS Safety Report 5524322-6 (Version None)
Quarter: 2007Q4

REPORT INFORMATION
  Report Type: 
  Country: None (occurrence: None)
  Receive Date: 20071121
  Receipt Date: 20071112
  Transmission Date: 20080405
  Serious: Yes (Other)
  Sender: FDA-Public Use
  Company Number: GB-PFIZER INC-2007095563

PATIENT
  Age: 54 Year

DRUGS (4)
  1. CABERGOLINE [Suspect]
     Indication: PARKINSON'S DISEASE
     Route: 048
     Dates: start: 20010101, end: 20070101
  2. SINEMET [Concomitant]
     Route: 048
  3. SINEMET CR [Concomitant]
     Route: 048
  4. ZELAPAR [Concomitant]
     Route: 048

REACTIONS (2)
  - AORTIC VALVE INCOMPETENCE [None]
  - MITRAL VALVE INCOMPETENCE [None]
